FAERS Safety Report 20262643 (Version 1)
Quarter: 2021Q4

REPORT INFORMATION
  Report Type: Spontaneous
  Country: NL (occurrence: NL)
  Receive Date: 20211231
  Receipt Date: 20211231
  Transmission Date: 20220303
  Serious: Yes (Other)
  Sender: FDA-Public Use
  Company Number: NL-LRB-00727210

PATIENT
  Sex: Male
  Weight: 3.8 kg

DRUGS (3)
  1. CITALOPRAM HYDROBROMIDE [Suspect]
     Active Substance: CITALOPRAM HYDROBROMIDE
     Indication: Depression
     Dosage: 40 MILLIGRAM, ONCE A DAY (1X PER DAY 2 PIECES)
     Route: 064
  2. OMEPRAZOLE [Concomitant]
     Active Substance: OMEPRAZOLE
     Indication: Product used for unknown indication
     Dosage: UNK (GASTRO-RESISTANT CAPSULE, 20 MG (MILLIGRAMS))
     Route: 065
  3. CLINDAMYCIN [Concomitant]
     Active Substance: CLINDAMYCIN
     Indication: Product used for unknown indication
     Dosage: 900 MILLIGRAM, 3 TIMES A DAY (3X/DAY 900 MILLIGRAMS IV)
     Route: 064

REACTIONS (5)
  - Syncope [Recovered/Resolved]
  - Neonatal respiratory failure [Recovered/Resolved]
  - Bradycardia [Recovered/Resolved]
  - Maternal exposure during pregnancy [Unknown]
  - Hypertonia [Recovered/Resolved]
